FAERS Safety Report 16044334 (Version 3)
Quarter: 2019Q3

REPORT INFORMATION
  Report Type: Spontaneous
  Country: US (occurrence: US)
  Receive Date: 20190306
  Receipt Date: 20190703
  Transmission Date: 20191004
  Serious: Yes (Other)
  Sender: FDA-Public Use
  Company Number: US-VIFOR (INTERNATIONAL) INC.-VIT-2019-01953

PATIENT
  Sex: Male

DRUGS (8)
  1. LEVOTHYROXINE SODIUM. [Concomitant]
     Active Substance: LEVOTHYROXINE SODIUM
  2. ZEMPLAR [Concomitant]
     Active Substance: PARICALCITOL
  3. LEVEMIR [Concomitant]
     Active Substance: INSULIN DETEMIR
  4. VELTASSA [Suspect]
     Active Substance: PATIROMER
     Route: 048
  5. VELTASSA [Suspect]
     Active Substance: PATIROMER
     Route: 048
     Dates: start: 201806
  6. ARANESP [Concomitant]
     Active Substance: DARBEPOETIN ALFA
  7. NOVOLIN R [Concomitant]
     Active Substance: INSULIN HUMAN
  8. VELTASSA [Suspect]
     Active Substance: PATIROMER
     Indication: HYPERKALAEMIA
     Route: 048
     Dates: start: 20180626

REACTIONS (5)
  - Diabetes mellitus [Not Recovered/Not Resolved]
  - Product dose omission [Unknown]
  - Diarrhoea [Recovered/Resolved]
  - Off label use [Unknown]
  - Ill-defined disorder [Unknown]
